FAERS Safety Report 17701382 (Version 1)
Quarter: 2020Q2

REPORT INFORMATION
  Report Type: Spontaneous
  Country: GB (occurrence: GB)
  Receive Date: 20200424
  Receipt Date: 20200424
  Transmission Date: 20200714
  Serious: Yes (Hospitalization, Other)
  Sender: FDA-Public Use
  Company Number: GB-AUROBINDO-AUR-APL-2014-04615

PATIENT
  Age: 27 Year
  Sex: Female

DRUGS (1)
  1. PARACETAMOL 500 MG SOLUBLE TABLETS (GSL) [Suspect]
     Active Substance: ACETAMINOPHEN
     Indication: PRODUCT USED FOR UNKNOWN INDICATION
     Dosage: 11 GRAM (THE PATIENT TOOK AN OVERDOSE OF PARACETAMOL 11 G (196 MG/KG)
     Route: 048

REACTIONS (5)
  - Jaundice [Recovered/Resolved]
  - Intentional overdose [Recovering/Resolving]
  - Anaemia [Unknown]
  - Haemolysis [Recovered/Resolved]
  - Blood bilirubin increased [Recovering/Resolving]
